FAERS Safety Report 8189422-3 (Version None)
Quarter: 2012Q1

REPORT INFORMATION
  Report Type: 
  Country: None (occurrence: None)
  Receive Date: 20120307
  Receipt Date: 20120301
  Transmission Date: 20120608
  Serious: No
  Sender: FDA-Public Use
  Company Number: US-PFIZER INC-2012055298

PATIENT

DRUGS (2)
  1. LYRICA [Suspect]
     Dosage: 300 MG, UNK
  2. LYRICA [Suspect]
     Indication: NEURALGIA
     Dosage: 50 MG, UNK

REACTIONS (5)
  - BRADYPHRENIA [None]
  - SOMNOLENCE [None]
  - DRUG INEFFECTIVE [None]
  - FEELING ABNORMAL [None]
  - DIZZINESS [None]
